FAERS Safety Report 5429747-5 (Version None)
Quarter: 2007Q3

REPORT INFORMATION
  Report Type: 
  Country: None (occurrence: None)
  Receive Date: 20070829
  Receipt Date: 20070820
  Transmission Date: 20080115
  Serious: Yes (Hospitalization)
  Sender: FDA-Public Use
  Company Number: CA-AMGEN-KDL239262

PATIENT
  Sex: Female
  Weight: 68.1 kg

DRUGS (8)
  1. ENBREL [Suspect]
     Indication: RHEUMATOID ARTHRITIS
     Route: 058
     Dates: start: 20060801
  2. HYDROCHLOROTHIAZIDE [Suspect]
  3. CELEBREX [Concomitant]
     Dates: start: 20050101
  4. XALATAN [Concomitant]
     Dates: start: 20021125
  5. ACTONEL [Concomitant]
     Dates: start: 20051121
  6. SYNTHROID [Concomitant]
     Dates: start: 20070516
  7. SULFASALAZINE [Concomitant]
     Dates: start: 20051110
  8. CALTRATE 600 [Concomitant]
     Dates: start: 20051121

REACTIONS (3)
  - DIARRHOEA [None]
  - HYPONATRAEMIA [None]
  - URINARY TRACT INFECTION [None]
